FAERS Safety Report 7417973-5 (Version None)
Quarter: 2011Q2

REPORT INFORMATION
  Report Type: 
  Country: None (occurrence: None)
  Receive Date: 20110415
  Receipt Date: 20110405
  Transmission Date: 20111010
  Serious: Yes (Other)
  Sender: FDA-Public Use
  Company Number: US-ROCHE-731973

PATIENT
  Sex: Male
  Weight: 101.6 kg

DRUGS (3)
  1. AMNESTEEM [Suspect]
     Indication: ACNE
     Route: 048
     Dates: start: 20030331
  2. ACCUTANE [Suspect]
     Route: 065
     Dates: start: 20030718, end: 20031006
  3. ACCUTANE [Suspect]
     Indication: ACNE
     Route: 065
     Dates: start: 20030225

REACTIONS (4)
  - IRRITABLE BOWEL SYNDROME [None]
  - INFLAMMATORY BOWEL DISEASE [None]
  - DEPRESSION [None]
  - CROHN'S DISEASE [None]
